FAERS Safety Report 17657167 (Version 2)
Quarter: 2021Q4

REPORT INFORMATION
  Report Type: Spontaneous
  Country: US (occurrence: US)
  Receive Date: 20200410
  Receipt Date: 20211101
  Transmission Date: 20220303
  Serious: Yes (Other)
  Sender: FDA-Public Use
  Company Number: US-ELI_LILLY_AND_COMPANY-US202004000944

PATIENT
  Sex: Female

DRUGS (1)
  1. EMGALITY [Suspect]
     Active Substance: GALCANEZUMAB-GNLM
     Indication: Migraine
     Dosage: 120 MG, UNKNOWN
     Route: 058
     Dates: start: 201909

REACTIONS (4)
  - Granuloma annulare [Not Recovered/Not Resolved]
  - Blood testosterone decreased [Unknown]
  - Alopecia [Unknown]
  - Injection site reaction [Recovered/Resolved]
